FAERS Safety Report 9095839 (Version 7)
Quarter: 2015Q4

REPORT INFORMATION
  Report Type: Report from Study
  Country: US (occurrence: US)
  Receive Date: 20130220
  Receipt Date: 20151106
  Transmission Date: 20160305
  Serious: Yes (Hospitalization)
  Sender: FDA-Public Use
  Company Number: US-ACTELION-A-US2013-79638

PATIENT
  Age: 58 Year
  Sex: Female

DRUGS (2)
  1. VENTAVIS [Suspect]
     Active Substance: ILOPROST
     Indication: PULMONARY ARTERIAL HYPERTENSION
     Dosage: 5 MCG, 5-9XDAY
     Route: 055
     Dates: start: 20120305, end: 2014
  2. SILDENAFIL. [Concomitant]
     Active Substance: SILDENAFIL

REACTIONS (5)
  - Headache [Unknown]
  - Blindness unilateral [Unknown]
  - Gout [Unknown]
  - Aneurysm repair [Unknown]
  - Intracranial aneurysm [Unknown]
